FAERS Safety Report 15127913 (Version 16)
Quarter: 2021Q1

REPORT INFORMATION
  Report Type: Other
  Country: DE (occurrence: DE)
  Receive Date: 20180710
  Receipt Date: 20210125
  Transmission Date: 20210419
  Serious: Yes (Hospitalization, Other)
  Sender: FDA-Public Use
  Company Number: DE-ROCHE-2072502

PATIENT
  Age: 80 Year
  Sex: Male

DRUGS (24)
  1. ROACTEMRA [Suspect]
     Active Substance: TOCILIZUMAB
     Indication: POLYMYALGIA RHEUMATICA
     Route: 058
     Dates: start: 20180305
  2. ROACTEMRA [Suspect]
     Active Substance: TOCILIZUMAB
     Route: 058
     Dates: start: 20200508
  3. ROACTEMRA [Suspect]
     Active Substance: TOCILIZUMAB
     Route: 058
     Dates: start: 20200907
  4. ROACTEMRA [Suspect]
     Active Substance: TOCILIZUMAB
     Route: 058
     Dates: start: 20200511
  5. DEKRISTOL [Concomitant]
     Active Substance: CHOLECALCIFEROL
  6. VOLTAREN FORTE [DICLOFENAC DIETHYLAMINE] [Concomitant]
  7. PANTOPRAZOL [Concomitant]
     Active Substance: PANTOPRAZOLE SODIUM
  8. ASPIRIN. [Concomitant]
     Active Substance: ASPIRIN
  9. PANTOPRAZOL [Concomitant]
     Active Substance: PANTOPRAZOLE SODIUM
  10. HYDROCHLOROTHIAZIDE. [Concomitant]
     Active Substance: HYDROCHLOROTHIAZIDE
  11. CORTISONE [Concomitant]
     Active Substance: CORTISONE
     Dates: start: 2018, end: 20190718
  12. ROACTEMRA [Suspect]
     Active Substance: TOCILIZUMAB
     Indication: GIANT CELL ARTERITIS
     Route: 058
     Dates: start: 20180123
  13. ASPIRIN. [Concomitant]
     Active Substance: ASPIRIN
  14. SIMVASTATIN. [Concomitant]
     Active Substance: SIMVASTATIN
  15. PREDNISOLON [Concomitant]
     Active Substance: PREDNISOLONE
  16. PREDNISOLON [Concomitant]
     Active Substance: PREDNISOLONE
  17. AMLODIPIN [Concomitant]
     Active Substance: AMLODIPINE BESYLATE
  18. TRUSOPT [Concomitant]
     Active Substance: DORZOLAMIDE HYDROCHLORIDE
     Dosage: 20 MG/ML
  19. CORTISONE [Concomitant]
     Active Substance: CORTISONE
     Dates: end: 2018
  20. AUGENTROPFEN [Concomitant]
  21. ROACTEMRA [Suspect]
     Active Substance: TOCILIZUMAB
     Route: 058
     Dates: start: 20200305, end: 20200608
  22. TAFLOTAN SINE [Concomitant]
     Active Substance: TAFLUPROST
     Dosage: 15 MICROGRAM /ML
     Route: 047
  23. A?HYDROCORT [Concomitant]
     Active Substance: HYDROCORTISONE SODIUM SUCCINATE
  24. XUSAL [Concomitant]
     Active Substance: LEVOCETIRIZINE DIHYDROCHLORIDE

REACTIONS (24)
  - Syncope [Recovered/Resolved]
  - Diplopia [Unknown]
  - Nausea [Unknown]
  - Myalgia [Not Recovered/Not Resolved]
  - Vertigo positional [Recovered/Resolved]
  - Vomiting [Unknown]
  - Haemarthrosis [Unknown]
  - Intentional product use issue [Unknown]
  - Rash [Recovered/Resolved]
  - Dizziness [Recovered/Resolved]
  - Glossitis [Recovered/Resolved]
  - Haematoma [Recovered/Resolved]
  - Arthralgia [Not Recovered/Not Resolved]
  - Urticaria [Recovered/Resolved]
  - Gait disturbance [Recovered/Resolved]
  - Blood cholesterol increased [Recovered/Resolved]
  - Urine analysis abnormal [Not Recovered/Not Resolved]
  - Pruritus [Recovered/Resolved]
  - Thrombophlebitis superficial [Not Recovered/Not Resolved]
  - Nephrolithiasis [Recovered/Resolved]
  - Contusion [Not Recovered/Not Resolved]
  - Granulocyte count decreased [Recovered/Resolved]
  - Tinnitus [Recovered/Resolved]
  - Off label use [Unknown]

NARRATIVE: CASE EVENT DATE: 20180126
